FAERS Safety Report 7792813-3 (Version None)
Quarter: 2011Q4

REPORT INFORMATION
  Report Type: 
  Country: None (occurrence: None)
  Receive Date: 20111003
  Receipt Date: 20110926
  Transmission Date: 20120403
  Serious: Yes (Hospitalization)
  Sender: FDA-Public Use
  Company Number: US-GLAXOSMITHKLINE-A0939309A

PATIENT
  Age: 57 Year
  Sex: Female
  Weight: 81.4 kg

DRUGS (9)
  1. HYDROCORTISONE CREAM [Concomitant]
  2. DIOVAN [Concomitant]
     Indication: HYPERTENSION
  3. HUMIRA [Suspect]
     Indication: CROHN'S DISEASE
     Dosage: 40MG UNKNOWN
     Route: 042
     Dates: start: 20100101, end: 20100101
  4. NEBIVOLOL HCL [Concomitant]
     Indication: HYPERTENSION
  5. VALTREX [Suspect]
     Indication: HERPES ZOSTER
     Route: 065
     Dates: start: 20110501
  6. HUMIRA [Suspect]
     Dosage: 40MG UNKNOWN
     Route: 042
     Dates: start: 20101201, end: 20110301
  7. HUMIRA [Suspect]
     Dosage: 40MG UNKNOWN
     Route: 042
     Dates: start: 20110401, end: 20110501
  8. AMLODIPINE BESYLATE [Concomitant]
     Indication: HYPERTENSION
  9. PREDNISONE [Concomitant]
     Indication: CROHN'S DISEASE

REACTIONS (10)
  - GASTROINTESTINAL INFECTION [None]
  - NAUSEA [None]
  - ENTEROVESICAL FISTULA [None]
  - URINARY TRACT INFECTION [None]
  - BLOOD URINE PRESENT [None]
  - DRUG INEFFECTIVE [None]
  - HERPES ZOSTER [None]
  - HAEMATURIA [None]
  - BACK PAIN [None]
  - SINUSITIS [None]
